FAERS Safety Report 10176514 (Version 2)
Quarter: 2014Q2

REPORT INFORMATION
  Report Type: Spontaneous
  Country: CN (occurrence: CN)
  Receive Date: 20140516
  Receipt Date: 20140516
  Transmission Date: 20141212
  Serious: Yes (Other)
  Sender: FDA-Public Use
  Company Number: CN-JNJFOC-20140304440

PATIENT
  Sex: Female

DRUGS (3)
  1. INVEGA [Suspect]
     Indication: SCHIZOPHRENIA
     Dosage: PARTNER DOSING
     Route: 048
     Dates: start: 201307
  2. INVEGA [Suspect]
     Indication: SCHIZOPHRENIA
     Dosage: PARTNER DOSING
     Route: 048
     Dates: start: 201301
  3. BENZHEXOL [Suspect]
     Indication: PRODUCT USED FOR UNKNOWN INDICATION
     Dosage: PARTNER DOSING
     Route: 065

REACTIONS (4)
  - Abortion threatened [Recovered/Resolved]
  - Foetal heart rate abnormal [Recovered/Resolved]
  - Exposure via father [Unknown]
  - Progesterone decreased [Recovered/Resolved]
